FAERS Safety Report 4269701-2 (Version None)
Quarter: 2004Q1

REPORT INFORMATION
  Report Type: 
  Country: None (occurrence: None)
  Receive Date: 20040112
  Receipt Date: 20040105
  Transmission Date: 20041129
  Serious: Yes (Hospitalization)
  Sender: FDA-Public Use
  Company Number: TPA2004A00016

PATIENT
  Age: 43 Year
  Sex: Male

DRUGS (12)
  1. PIOGLITAZONE HCL [Suspect]
     Indication: DIABETES MELLITUS
     Dosage: 15 MG, PER ORAL
     Route: 048
     Dates: start: 20011226
  2. EFFEXOR [Concomitant]
  3. PHAZYME (PHAZYME) [Concomitant]
  4. ORUDIS [Concomitant]
  5. LACTAID (TILACTASE) [Concomitant]
  6. VIAGRA [Concomitant]
  7. PANCREASE (PANCRELIPASE) [Concomitant]
  8. MULTIVITAMIN (MULTIVITAMINS) [Concomitant]
  9. SYNTHROID [Concomitant]
  10. PSEUDOEPHEDRINE HCL [Concomitant]
  11. DEPO-TESTOSTERONE [Concomitant]
  12. METABOLIFE (METABOLIFE) [Concomitant]

REACTIONS (1)
  - ILEUS [None]
